FAERS Safety Report 21401092 (Version 2)
Quarter: 2025Q2

REPORT INFORMATION
  Report Type: Spontaneous
  Country: IT (occurrence: IT)
  Receive Date: 20221003
  Receipt Date: 20250610
  Transmission Date: 20250716
  Serious: Yes (Other)
  Sender: AUROBINDO
  Company Number: IT-AUROBINDO-AUR-APL-2022-040715

PATIENT
  Age: 21 Year
  Sex: Male
  Weight: 55 kg

DRUGS (6)
  1. LINEZOLID [Suspect]
     Active Substance: LINEZOLID
     Indication: Tuberculosis of central nervous system
     Route: 048
  2. AMIKACIN [Suspect]
     Active Substance: AMIKACIN
     Indication: Tuberculosis of central nervous system
     Route: 065
  3. BEDAQUILINE [Suspect]
     Active Substance: BEDAQUILINE
     Indication: Tuberculosis of central nervous system
     Route: 065
  4. BEDAQUILINE [Suspect]
     Active Substance: BEDAQUILINE
     Route: 065
  5. RIFAMPIN [Suspect]
     Active Substance: RIFAMPIN
     Indication: Tuberculosis of central nervous system
     Route: 065
  6. MOXIFLOXACIN [Concomitant]
     Active Substance: MOXIFLOXACIN
     Indication: Tuberculosis of central nervous system
     Route: 065

REACTIONS (3)
  - Tuberculosis of central nervous system [Unknown]
  - Off label use [Unknown]
  - Drug resistance [Unknown]
